FAERS Safety Report 12856917 (Version 1)
Quarter: 2016Q4

REPORT INFORMATION
  Report Type: Spontaneous
  Country: US (occurrence: US)
  Receive Date: 20161018
  Receipt Date: 20161018
  Transmission Date: 20170207
  Serious: No
  Sender: FDA-Public Use
  Company Number: US-PFIZER INC-2016482727

PATIENT
  Age: 46 Year
  Sex: Male

DRUGS (1)
  1. GABAPENTIN. [Suspect]
     Active Substance: GABAPENTIN
     Indication: NEURALGIA
     Dosage: 5600 MG, DAILY (800MG, THREE TIMES IN THE MORNING, FOUR TIMES AT NIGHT)
     Dates: start: 2003

REACTIONS (2)
  - Intentional overdose [Unknown]
  - Drug ineffective for unapproved indication [Unknown]
